FAERS Safety Report 11105510 (Version 2)
Quarter: 2016Q2

REPORT INFORMATION
  Report Type: Spontaneous
  Country: US (occurrence: US)
  Receive Date: 20150512
  Receipt Date: 20160510
  Transmission Date: 20160815
  Serious: Yes (Congenital Anomaly)
  Sender: FDA-Public Use
  Company Number: US-UCBSA-2015014328

PATIENT
  Age: 0 Year
  Weight: 3.65 kg

DRUGS (19)
  1. IRON [Concomitant]
     Active Substance: IRON
     Indication: PRODUCT USED FOR UNKNOWN INDICATION
     Dosage: 325 MG, 3.5 WEEK
     Route: 064
     Dates: start: 20141208, end: 20141229
  2. CIMZIA [Suspect]
     Active Substance: CERTOLIZUMAB PEGOL
     Dosage: 200 MG, 2X/MONTH
     Route: 064
     Dates: start: 20150122, end: 20150122
  3. ZOFRAN [Concomitant]
     Active Substance: ONDANSETRON HYDROCHLORIDE
     Indication: NAUSEA
     Dosage: 5 MG, ONCE DAILY (QD)
     Route: 064
     Dates: start: 20140822, end: 20140822
  4. FOLIC ACID. [Concomitant]
     Active Substance: FOLIC ACID
     Dosage: 200 ?G, 1 DAY
     Route: 064
     Dates: start: 20141003, end: 20150402
  5. FISH OIL [Concomitant]
     Active Substance: FISH OIL
     Indication: PRODUCT USED FOR UNKNOWN INDICATION
     Dosage: 2800 MG, ONCE DAILY (QD)
     Route: 064
     Dates: start: 20141201, end: 20150402
  6. PREDNISONE. [Concomitant]
     Active Substance: PREDNISONE
     Dosage: 30 MG, ONCE DAILY (QD)
     Route: 064
     Dates: start: 20141212, end: 20150101
  7. INFLUENZA VACCINE [Concomitant]
     Active Substance: INFLUENZA VIRUS VACCINE
     Indication: PRODUCT USED FOR UNKNOWN INDICATION
     Dosage: 1 SHOT
     Route: 064
     Dates: start: 20141002, end: 20141002
  8. PREDNISONE. [Concomitant]
     Active Substance: PREDNISONE
     Dosage: 10 MG, ONCE DAILY (QD)
     Route: 064
     Dates: start: 20150202, end: 20150315
  9. ZOFRAN [Concomitant]
     Active Substance: ONDANSETRON HYDROCHLORIDE
     Dosage: 5 MG, ONCE DAILY (QD)
     Route: 064
     Dates: start: 20140919, end: 20140919
  10. PRENATAL VITAMINS [Concomitant]
     Active Substance: VITAMINS
     Indication: PRODUCT USED FOR UNKNOWN INDICATION
     Dosage: 1 PILL , ONCE DAILY (QD)
     Route: 064
     Dates: start: 20140625, end: 20150402
  11. CALCIUM [Concomitant]
     Active Substance: CALCIUM
     Indication: PRODUCT USED FOR UNKNOWN INDICATION
     Dosage: 1000 MG, ONCE DAILY (QD)
     Route: 064
     Dates: start: 20140625, end: 20150402
  12. PREDNISONE. [Concomitant]
     Active Substance: PREDNISONE
     Indication: CROHN^S DISEASE
     Dosage: 40 MG, ONCE DAILY (QD)
     Route: 064
     Dates: start: 20141128, end: 20141211
  13. PREDNISONE. [Concomitant]
     Active Substance: PREDNISONE
     Dosage: 20 MG, ONCE DAILY (QD)
     Route: 064
     Dates: start: 20150102, end: 20150201
  14. LIALDA [Concomitant]
     Active Substance: MESALAMINE
     Indication: CROHN^S DISEASE
     Dosage: 3.6 G, ONCE DAILY (QD)
     Route: 064
     Dates: start: 20141114, end: 20141128
  15. DIPHTHERIA AND TETANUS TOXOIDS AND PERTUSSIS VACCINE ADSORBED NOS [Concomitant]
     Active Substance: DIPHTHERIA AND TETANUS TOXOIDS AND PERTUSSIS VACCINE
     Indication: PRODUCT USED FOR UNKNOWN INDICATION
     Dosage: 1 SHOT
     Route: 064
     Dates: start: 20150215, end: 20150215
  16. CIMZIA [Suspect]
     Active Substance: CERTOLIZUMAB PEGOL
     Indication: CROHN^S DISEASE
     Dosage: 400 MG, EV 2 WEEKS(QOW)
     Route: 064
     Dates: start: 20141211, end: 20150108
  17. CIMZIA [Suspect]
     Active Substance: CERTOLIZUMAB PEGOL
     Dosage: 400 MG, EV 2 WEEKS(QOW)
     Route: 064
     Dates: start: 20150205, end: 20150216
  18. FOLIC ACID. [Concomitant]
     Active Substance: FOLIC ACID
     Indication: PRODUCT USED FOR UNKNOWN INDICATION
     Dosage: 400 ?G, ONCE DAILY (QD)
     Route: 064
     Dates: start: 20140625, end: 20141002
  19. PROBIOTICS NOS [Concomitant]
     Active Substance: PROBIOTICS NOS
     Indication: PRODUCT USED FOR UNKNOWN INDICATION
     Dosage: 2 TABLETS
     Route: 064
     Dates: start: 20140625, end: 20150402

REACTIONS (3)
  - Foetal exposure during pregnancy [Unknown]
  - Hydronephrosis [Unknown]
  - Ureterocele [Unknown]

NARRATIVE: CASE EVENT DATE: 20141211
